FAERS Safety Report 13729291 (Version 1)
Quarter: 2017Q3

REPORT INFORMATION
  Report Type: Report from Study
  Country: IT (occurrence: IT)
  Receive Date: 20170707
  Receipt Date: 20170707
  Transmission Date: 20171127
  Serious: Yes (Hospitalization)
  Sender: FDA-Public Use
  Company Number: IT-TEVA-783603ROM

PATIENT
  Age: 66 Year
  Sex: Male

DRUGS (3)
  1. BETAMETHASONE. [Interacting]
     Active Substance: BETAMETHASONE
     Dosage: 4MG
     Route: 030
  2. THIOCOLCHICOSIDE [Suspect]
     Active Substance: THIOCOLCHICOSIDE
     Dosage: 4MG
     Route: 030
  3. DICLOFENAC [Suspect]
     Active Substance: DICLOFENAC
     Dosage: 75MG
     Route: 030

REACTIONS (3)
  - Incorrect drug administration duration [Recovering/Resolving]
  - Abdominal pain [Recovering/Resolving]
  - Drug interaction [Recovering/Resolving]
